FAERS Safety Report 9415213 (Version 2)
Quarter: 2013Q3

REPORT INFORMATION
  Report Type: Spontaneous
  Country: GB (occurrence: GB)
  Receive Date: 20130723
  Receipt Date: 20130802
  Transmission Date: 20140515
  Serious: Yes (Hospitalization)
  Sender: FDA-Public Use
  Company Number: SK-ASTRAZENECA-2013SE52665

PATIENT
  Age: 71 Year
  Sex: Female

DRUGS (9)
  1. OMEPRAZOLE [Suspect]
     Route: 048
  2. ASPIRIN [Concomitant]
  3. BISOPROLOL [Concomitant]
  4. FLURAZEPAM [Concomitant]
  5. DOSULEPIN [Concomitant]
  6. DOXAZOCIN [Concomitant]
  7. RAMIPRIL [Concomitant]
  8. PRAVASTATIN [Concomitant]
  9. ROPINIROLE [Concomitant]

REACTIONS (3)
  - Hypocalcaemia [Recovered/Resolved]
  - Hypokalaemia [Recovered/Resolved]
  - Hypomagnesaemia [Recovered/Resolved]
